FAERS Safety Report 5937920-2 (Version None)
Quarter: 2008Q4

REPORT INFORMATION
  Report Type: 
  Country: None (occurrence: None)
  Receive Date: 20081031
  Receipt Date: 20081021
  Transmission Date: 20090506
  Serious: Yes (Other)
  Sender: FDA-Public Use
  Company Number: US-PFIZER INC-2008002236

PATIENT
  Sex: Female
  Weight: 131.5 kg

DRUGS (18)
  1. LYRICA [Interacting]
     Indication: PERIPHERAL NERVE INJURY
     Route: 048
     Dates: start: 20070101
  2. NEURONTIN [Suspect]
  3. LORTAB [Interacting]
  4. NEXIUM [Concomitant]
  5. XENICAL [Concomitant]
  6. XANAX [Concomitant]
  7. CYMBALTA [Concomitant]
  8. ACTOS [Concomitant]
  9. VYTORIN [Concomitant]
  10. ELAVIL [Concomitant]
  11. METFORMIN HCL [Concomitant]
  12. DETROL [Concomitant]
  13. AVANDIA [Concomitant]
  14. SOMA [Concomitant]
  15. GLYBURIDE [Concomitant]
  16. LIPITOR [Concomitant]
  17. VITAMINS [Concomitant]
  18. TRIOBE [Concomitant]

REACTIONS (12)
  - ACTIVITIES OF DAILY LIVING IMPAIRED [None]
  - DIZZINESS [None]
  - DRUG INEFFECTIVE [None]
  - DRUG INTERACTION [None]
  - FATIGUE [None]
  - HYPERSOMNIA [None]
  - HYPOAESTHESIA [None]
  - INSOMNIA [None]
  - NAUSEA [None]
  - PAIN [None]
  - PARAESTHESIA [None]
  - SENSORY LOSS [None]
